FAERS Safety Report 8435056-2 (Version None)
Quarter: 2012Q2

REPORT INFORMATION
  Report Type: 
  Country: None (occurrence: None)
  Receive Date: 20120608
  Receipt Date: 20120608
  Transmission Date: 20120825
  Serious: No
  Sender: FDA-Public Use
  Company Number: None

PATIENT
  Age: 2 Month
  Sex: Male
  Weight: 3.89 kg

DRUGS (1)
  1. LIDOCAINE 1% [Suspect]
     Indication: NERVE BLOCK
     Dosage: .6 ML PERINERURAL
     Route: 053
     Dates: start: 20120606, end: 20120606

REACTIONS (1)
  - INJECTION SITE SWELLING [None]
